FAERS Safety Report 14579527 (Version 1)
Quarter: 2018Q1

REPORT INFORMATION
  Report Type: Spontaneous
  Country: US (occurrence: US)
  Receive Date: 20180227
  Receipt Date: 20180227
  Transmission Date: 20180509
  Serious: No
  Sender: FDA-Public Use
  Company Number: None

PATIENT
  Age: 29 Year
  Sex: Female
  Weight: 68.04 kg

DRUGS (1)
  1. OLANZAPINE. [Suspect]
     Active Substance: OLANZAPINE
     Indication: MENTAL DISORDER
     Dosage: 1 PILL/DAY
     Route: 048
     Dates: start: 20180130

REACTIONS (3)
  - Increased appetite [None]
  - Hypersomnia [None]
  - Menstruation delayed [None]

NARRATIVE: CASE EVENT DATE: 20180130
